FAERS Safety Report 17453398 (Version 1)
Quarter: 2020Q1

REPORT INFORMATION
  Report Type: Spontaneous
  Country: US (occurrence: US)
  Receive Date: 20200224
  Receipt Date: 20200224
  Transmission Date: 20200409
  Serious: No
  Sender: FDA-Public Use
  Company Number: US-PERRIGO-19US016185

PATIENT
  Age: 79 Year
  Sex: Male
  Weight: 75.28 kg

DRUGS (7)
  1. SOTALOL. [Concomitant]
     Active Substance: SOTALOL
     Indication: CARDIAC FAILURE CONGESTIVE
     Dosage: UNK
     Route: 065
  2. POTASSIUM [Concomitant]
     Active Substance: POTASSIUM
     Indication: ROUTINE HEALTH MAINTENANCE
     Dosage: UNK
     Route: 065
  3. LASIX [Concomitant]
     Active Substance: FUROSEMIDE
     Indication: ROUTINE HEALTH MAINTENANCE
     Dosage: UNK
     Route: 065
  4. LOPERAMIDE HYDROCHLORIDE. [Suspect]
     Active Substance: LOPERAMIDE HYDROCHLORIDE
     Indication: DIARRHOEA
     Dosage: 4 MG, ONCE; 2 MG, TWICE
     Route: 048
     Dates: start: 20191213, end: 20191213
  5. LOPERAMIDE HYDROCHLORIDE. [Suspect]
     Active Substance: LOPERAMIDE HYDROCHLORIDE
     Dosage: 4 MG, ONCE; 2 MG, ONCE
     Route: 048
     Dates: start: 20191214, end: 20191214
  6. DIGOXIN. [Concomitant]
     Active Substance: DIGOXIN
     Indication: CARDIAC FAILURE CONGESTIVE
     Dosage: UNK
     Route: 065
  7. IMDUR [Concomitant]
     Active Substance: ISOSORBIDE MONONITRATE
     Indication: CARDIAC FAILURE CONGESTIVE
     Dosage: UNK
     Route: 065

REACTIONS (3)
  - Constipation [Recovered/Resolved]
  - Anal incontinence [Recovered/Resolved]
  - Diarrhoea [Recovered/Resolved]

NARRATIVE: CASE EVENT DATE: 201912
